FAERS Safety Report 13855014 (Version 5)
Quarter: 2017Q3

REPORT INFORMATION
  Report Type: Report from Study
  Country: None (occurrence: NL)
  Receive Date: 20170810
  Receipt Date: 20170904
  Transmission Date: 20171127
  Serious: Yes (Hospitalization)
  Sender: FDA-Public Use
  Company Number: NL-ABBVIE-17K-114-2066688-00

PATIENT
  Age: 74 Year
  Sex: Male

DRUGS (2)
  1. DUODOPA [Suspect]
     Active Substance: CARBIDOPA\LEVODOPA
     Indication: PARKINSON^S DISEASE
     Dosage: MORNING DOSE:10.5;CONTINUOUS DOSE: 2.5; EXTRA DOSE:  1
     Route: 050
     Dates: start: 20170530, end: 2017
  2. MADOPAR [Concomitant]
     Active Substance: BENSERAZIDE HYDROCHLORIDE\LEVODOPA
     Indication: PRODUCT USED FOR UNKNOWN INDICATION

REACTIONS (11)
  - Drug effect incomplete [Not Recovered/Not Resolved]
  - Ileus [Not Recovered/Not Resolved]
  - Device dislocation [Unknown]
  - On and off phenomenon [Recovering/Resolving]
  - Device loosening [Unknown]
  - Drug ineffective [Not Recovered/Not Resolved]
  - Drug effect decreased [Recovering/Resolving]
  - Volvulus [Not Recovered/Not Resolved]
  - Abnormal faeces [Recovered/Resolved]
  - General physical health deterioration [Not Recovered/Not Resolved]
  - Loss of personal independence in daily activities [Not Recovered/Not Resolved]

NARRATIVE: CASE EVENT DATE: 2017
